FAERS Safety Report 7360557 (Version 3)
Quarter: 2022Q3

REPORT INFORMATION
  Report Type: Spontaneous
  Country: US (occurrence: US)
  Receive Date: 20100420
  Receipt Date: 20220922
  Transmission Date: 20221026
  Serious: Yes (Death, Hospitalization, Other)
  Sender: FDA-Public Use
  Company Number: US-PFIZER INC-2010045295

PATIENT
  Age: 71 Year
  Sex: Female
  Weight: 50 kg

DRUGS (1)
  1. AMLODIPINE BESYLATE [Suspect]
     Active Substance: AMLODIPINE BESYLATE
     Dosage: 135 MG, EVERY 1 DAY
     Route: 048

REACTIONS (8)
  - Intentional overdose [Fatal]
  - Hyponatraemia [Fatal]
  - Oliguria [Fatal]
  - Respiratory failure [Fatal]
  - Acidosis [Not Recovered/Not Resolved]
  - Pulmonary oedema [Not Recovered/Not Resolved]
  - Hypotension [Recovered/Resolved]
  - Mental impairment [Not Recovered/Not Resolved]
